FAERS Safety Report 10311516 (Version 1)
Quarter: 2014Q3

REPORT INFORMATION
  Report Type: Spontaneous
  Country: BR (occurrence: None)
  Receive Date: 20140715
  Receipt Date: 20140715
  Transmission Date: 20150326
  Serious: Yes (Death, Other)
  Sender: FDA-Public Use
  Company Number: 2014JUB00044

PATIENT
  Age: 14 Year
  Sex: Female

DRUGS (5)
  1. HYDROXYCHLOROQUINE (HYDROXYCHLOROQUINE) [Concomitant]
  2. AZATHIOPRINE (AZATHIOPRINE) [Suspect]
     Active Substance: AZATHIOPRINE
     Indication: SYSTEMIC LUPUS ERYTHEMATOSUS
  3. PREDNISONE (PREDNISONE) [Suspect]
     Active Substance: PREDNISONE
     Indication: SYSTEMIC LUPUS ERYTHEMATOSUS
  4. CYCLOPHOSPHAMIDE. [Concomitant]
     Active Substance: CYCLOPHOSPHAMIDE
  5. METHYLPREDNISOLONE (METHYLPREDNISOLONE) [Suspect]
     Active Substance: METHYLPREDNISOLONE
     Indication: LUPUS NEPHRITIS
     Route: 042

REACTIONS (17)
  - Pneumonia bacterial [None]
  - Septic shock [None]
  - Arthritis [None]
  - Butterfly rash [None]
  - Meningitis cryptococcal [None]
  - Haemoglobin decreased [None]
  - Vomiting [None]
  - Haematocrit decreased [None]
  - Headache [None]
  - Hypertension [None]
  - Coma [None]
  - Cutaneous vasculitis [None]
  - Proteinuria [None]
  - Urine analysis abnormal [None]
  - Nausea [None]
  - Lethargy [None]
  - Nuchal rigidity [None]
